FAERS Safety Report 16609374 (Version 1)
Quarter: 2019Q3

REPORT INFORMATION
  Report Type: Spontaneous
  Country: US (occurrence: US)
  Receive Date: 20190720
  Receipt Date: 20190720
  Transmission Date: 20191004
  Serious: Yes (Other)
  Sender: FDA-Public Use
  Company Number: None

PATIENT
  Age: 74 Year
  Sex: Male
  Weight: 94.5 kg

DRUGS (1)
  1. CITALPRAM HBR [Suspect]
     Active Substance: CITALOPRAM HYDROBROMIDE
     Indication: DEPRESSION
     Route: 048
     Dates: start: 20140508

REACTIONS (2)
  - Tardive dyskinesia [None]
  - Speech disorder [None]

NARRATIVE: CASE EVENT DATE: 20190719
